FAERS Safety Report 23943177 (Version 1)
Quarter: 2024Q2

REPORT INFORMATION
  Report Type: Spontaneous
  Country: ES (occurrence: ES)
  Receive Date: 20240605
  Receipt Date: 20240605
  Transmission Date: 20240716
  Serious: Yes (Other)
  Sender: FDA-Public Use
  Company Number: None

PATIENT
  Age: 51 Year
  Sex: Female
  Weight: 74 kg

DRUGS (2)
  1. SELPERCATINIB [Suspect]
     Active Substance: SELPERCATINIB
     Indication: Anaplastic thyroid cancer
     Dosage: 160 MG, BID
     Route: 048
     Dates: start: 20240122, end: 20240220
  2. SELPERCATINIB [Suspect]
     Active Substance: SELPERCATINIB
     Dosage: UNK, UNKNOWN
     Route: 065

REACTIONS (2)
  - Erythema multiforme [Recovered/Resolved]
  - Erythema [Recovered/Resolved]

NARRATIVE: CASE EVENT DATE: 20240216
